FAERS Safety Report 5911051-X (Version None)
Quarter: 2008Q4

REPORT INFORMATION
  Report Type: 
  Country: None (occurrence: None)
  Receive Date: 20081007
  Receipt Date: 20080923
  Transmission Date: 20090506
  Serious: Yes (Other)
  Sender: FDA-Public Use
  Company Number: US-ELI_LILLY_AND_COMPANY-US200809005158

PATIENT
  Sex: Female

DRUGS (7)
  1. FORTEO [Suspect]
     Indication: OSTEOPOROSIS
     Dates: start: 20080509
  2. PLAVIX [Concomitant]
  3. OMEPRAZOLE [Concomitant]
  4. SANCTURA [Concomitant]
  5. LEVOXYL [Concomitant]
  6. AVALIDE [Concomitant]
  7. VITAMINS NOS [Concomitant]

REACTIONS (1)
  - LUNG CANCER METASTATIC [None]
